FAERS Safety Report 8550337-X (Version None)
Quarter: 2012Q3

REPORT INFORMATION
  Report Type: 
  Country: None (occurrence: None)
  Receive Date: 20120730
  Receipt Date: 20120719
  Transmission Date: 20120928
  Serious: Yes (Hospitalization, Other)
  Sender: FDA-Public Use
  Company Number: US-PFIZER INC-A204838

PATIENT
  Sex: Female
  Weight: 56.7 kg

DRUGS (20)
  1. PENTOBARBITAL CAP [Concomitant]
     Dosage: UNK
     Route: 042
     Dates: start: 19970401, end: 19970401
  2. HALOPERIDOL [Concomitant]
     Dosage: UNK
     Route: 042
     Dates: start: 19970410, end: 19970401
  3. DILANTIN [Suspect]
     Dosage: UNK
     Route: 042
     Dates: start: 19970401, end: 19970426
  4. NYSTATIN [Concomitant]
     Dosage: UNK
     Dates: start: 19970401, end: 19970401
  5. FRESH FROZEN PLASMA [Concomitant]
     Dosage: UNK
     Route: 042
     Dates: start: 19970401, end: 19970101
  6. FLUCONAZOLE [Suspect]
     Indication: FUNGAL INFECTION
     Dosage: DAILY
     Route: 042
     Dates: start: 19970422, end: 19970430
  7. MANNITOL [Concomitant]
     Dosage: UNK
     Route: 042
     Dates: start: 19970409, end: 19970501
  8. DEXAMETHASONE [Concomitant]
     Dosage: UNK
     Route: 042
     Dates: start: 19970409, end: 19970501
  9. POTASSIUM CHLORIDE [Concomitant]
     Dosage: UNK
     Route: 042
     Dates: start: 19970409, end: 19970101
  10. CEFOTAXIME SODIUM [Concomitant]
     Dosage: UNK
     Route: 042
     Dates: start: 19970413, end: 19970101
  11. DOPAMINE HCL [Concomitant]
     Dosage: UNK
     Route: 042
     Dates: start: 19970417, end: 19970401
  12. VANCOMYCIN [Concomitant]
     Dosage: UNK
     Route: 042
     Dates: start: 19970413, end: 19970101
  13. NEURONTIN [Suspect]
     Indication: CONVULSION
     Dosage: TID
     Dates: start: 19970425, end: 19980101
  14. NITROPRUSSIDE SODIUM [Concomitant]
     Dosage: UNK
     Route: 042
     Dates: start: 19970410, end: 19970401
  15. PSEUDOEPHEDRINE HYDROCHLORIDE [Concomitant]
     Dosage: UNK
     Route: 048
     Dates: start: 19970101, end: 19970101
  16. MORPHINE SULFATE [Concomitant]
     Dosage: UNK
     Route: 042
     Dates: start: 19970409, end: 19970401
  17. DILANTIN [Suspect]
     Indication: CONVULSION
     Dosage: 1 GM FOLLOWED BY 300 MG
     Route: 042
     Dates: start: 19970409
  18. FAMOTIDINE [Concomitant]
     Dosage: UNK
     Route: 042
     Dates: start: 19970410, end: 19970501
  19. ATROPINE [Concomitant]
     Dosage: UNK
     Route: 042
     Dates: start: 19970409
  20. METOCLOPRAMIDE [Concomitant]
     Dosage: UNK
     Route: 042
     Dates: start: 19970401, end: 19970401

REACTIONS (35)
  - LIVER FUNCTION TEST ABNORMAL [None]
  - ARTHROPATHY [None]
  - CONSTIPATION [None]
  - BLINDNESS UNILATERAL [None]
  - OESOPHAGITIS [None]
  - FATIGUE [None]
  - FALL [None]
  - DIZZINESS [None]
  - PSYCHOTIC DISORDER [None]
  - VISUAL FIELD DEFECT [None]
  - WEIGHT INCREASED [None]
  - OLIGOMENORRHOEA [None]
  - AMNESIA [None]
  - OPTIC ISCHAEMIC NEUROPATHY [None]
  - BLOOD TRIGLYCERIDES INCREASED [None]
  - RUPTURED CEREBRAL ANEURYSM [None]
  - RESPIRATORY TRACT INFECTION [None]
  - ABDOMINAL DISTENSION [None]
  - DIARRHOEA [None]
  - DEPRESSION [None]
  - SEBORRHOEIC DERMATITIS [None]
  - OBSESSIVE-COMPULSIVE DISORDER [None]
  - STAPHYLOCOCCAL BACTERAEMIA [None]
  - GRANULOMA [None]
  - RASH PRURITIC [None]
  - VULVOVAGINAL MYCOTIC INFECTION [None]
  - BLADDER DISORDER [None]
  - ELECTROCARDIOGRAM T WAVE ABNORMAL [None]
  - BLOOD CHOLESTEROL INCREASED [None]
  - URINARY TRACT INFECTION [None]
  - INSOMNIA [None]
  - ANKLE FRACTURE [None]
  - CRANIOTOMY [None]
  - PHARYNGITIS [None]
  - HYPOTHYROIDISM [None]
